FAERS Safety Report 25401144 (Version 1)
Quarter: 2025Q2

REPORT INFORMATION
  Report Type: Spontaneous
  Country: NL (occurrence: NL)
  Receive Date: 20250605
  Receipt Date: 20250605
  Transmission Date: 20250717
  Serious: Yes (Hospitalization, Other)
  Sender: AMGEN
  Company Number: NL-AMGEN-NLDSP2025105903

PATIENT
  Age: 18 Year
  Sex: Female

DRUGS (5)
  1. ADALIMUMAB [Suspect]
     Active Substance: ADALIMUMAB
     Indication: Crohn^s disease
     Route: 065
  2. MERCAPTOPURINE [Concomitant]
     Active Substance: MERCAPTOPURINE
     Indication: Crohn^s disease
  3. INFLIXIMAB [Concomitant]
     Active Substance: INFLIXIMAB
     Indication: Crohn^s disease
  4. PREDNISOLONE [Concomitant]
     Active Substance: PREDNISOLONE
     Indication: Crohn^s disease
  5. BUDESONIDE [Concomitant]
     Active Substance: BUDESONIDE
     Indication: Crohn^s disease

REACTIONS (6)
  - Crohn^s disease [Recovered/Resolved]
  - Hypoalbuminaemia [Recovered/Resolved]
  - Colitis [Recovered/Resolved]
  - Paroxysmal nocturnal haemoglobinuria [Recovered/Resolved]
  - Maternal exposure during pregnancy [Unknown]
  - Oedema [Recovered/Resolved]
